FAERS Safety Report 24623300 (Version 1)
Quarter: 2024Q4

REPORT INFORMATION
  Report Type: Spontaneous
  Country: KR (occurrence: KR)
  Receive Date: 20241115
  Receipt Date: 20241115
  Transmission Date: 20250115
  Serious: Yes (Other)
  Sender: NOVARTIS
  Company Number: KR-002147023-NVSC2024KR219793

PATIENT
  Age: 59 Year
  Sex: Female

DRUGS (2)
  1. VOTRIENT [Suspect]
     Active Substance: PAZOPANIB HYDROCHLORIDE
     Indication: Ovarian cancer
     Dosage: 800 MG
     Route: 048
  2. VOTRIENT [Suspect]
     Active Substance: PAZOPANIB HYDROCHLORIDE
     Dosage: 600 MG
     Route: 048

REACTIONS (6)
  - Ovarian cancer [Unknown]
  - Malignant neoplasm progression [Unknown]
  - Stomatitis [Recovering/Resolving]
  - Drug resistance [Unknown]
  - Therapeutic response unexpected [Unknown]
  - Off label use [Unknown]
